FAERS Safety Report 7401160-0 (Version None)
Quarter: 2011Q2

REPORT INFORMATION
  Report Type: 
  Country: None (occurrence: None)
  Receive Date: 20110407
  Receipt Date: 20110331
  Transmission Date: 20111010
  Serious: Yes (Other)
  Sender: FDA-Public Use
  Company Number: US-AMGEN-USASP2011017483

PATIENT
  Age: 21 Year
  Sex: Male

DRUGS (2)
  1. ANTINEOPLASTIC AGENTS [Concomitant]
  2. NEUPOGEN [Suspect]
     Indication: NEUTROPENIA

REACTIONS (1)
  - BONE NEOPLASM MALIGNANT [None]
